FAERS Safety Report 25478383 (Version 2)
Quarter: 2025Q3

REPORT INFORMATION
  Report Type: Spontaneous
  Country: EU (occurrence: EU)
  Receive Date: 20250625
  Receipt Date: 20250819
  Transmission Date: 20251020
  Serious: Yes (Hospitalization, Disabling)
  Sender: NOVARTIS
  Company Number: EU-002147023-NVSC2025DE101106

PATIENT
  Age: 67 Year
  Sex: Male

DRUGS (2)
  1. LEQVIO [Suspect]
     Active Substance: INCLISIRAN SODIUM
     Indication: Product used for unknown indication
     Route: 065
     Dates: start: 20250417
  2. PANTOPRAZOLE [Concomitant]
     Active Substance: PANTOPRAZOLE
     Indication: Prophylaxis
     Route: 065
     Dates: start: 2025

REACTIONS (8)
  - Arrhythmia [Unknown]
  - Gait disturbance [Recovering/Resolving]
  - Mobility decreased [Recovering/Resolving]
  - Myalgia [Recovering/Resolving]
  - Hepatic enzyme increased [Unknown]
  - Feeling abnormal [Recovering/Resolving]
  - General physical health deterioration [Recovering/Resolving]
  - Fatigue [Unknown]

NARRATIVE: CASE EVENT DATE: 20250101
